FAERS Safety Report 5989597-8 (Version None)
Quarter: 2008Q4

REPORT INFORMATION
  Report Type: 
  Country: None (occurrence: None)
  Receive Date: 20081208
  Receipt Date: 20081126
  Transmission Date: 20090506
  Serious: Yes (Death)
  Sender: FDA-Public Use
  Company Number: A-CH2008-22863

PATIENT
  Age: 9 Month
  Sex: Female
  Weight: 1 kg

DRUGS (3)
  1. TRACLEER [Suspect]
     Indication: PULMONARY ARTERIAL HYPERTENSION
     Dosage: 1.5 MG, QD, ORAL
     Route: 048
     Dates: start: 20080429, end: 20080509
  2. FENTANYL-100 [Concomitant]
  3. DEXAMETHASONE TAB [Concomitant]

REACTIONS (2)
  - CYANOSIS [None]
  - DYSPNOEA [None]
